FAERS Safety Report 25682904 (Version 2)
Quarter: 2025Q3

REPORT INFORMATION
  Report Type: Spontaneous
  Country: EU (occurrence: EU)
  Receive Date: 20250814
  Receipt Date: 20250825
  Transmission Date: 20251020
  Serious: No
  Sender: TEVA
  Company Number: EU-TEVA-VS-3361418

PATIENT
  Age: 77 Year
  Sex: Female

DRUGS (2)
  1. ACTIQ [Suspect]
     Active Substance: FENTANYL CITRATE
     Indication: Pain
     Route: 065
  2. ACTIQ [Suspect]
     Active Substance: FENTANYL CITRATE
     Indication: Pain
     Dosage: TABLET WITH BUCCAL APPLICATOR
     Route: 065
     Dates: start: 2025

REACTIONS (1)
  - Off label use [Unknown]
